FAERS Safety Report 18750715 (Version 3)
Quarter: 2021Q1

REPORT INFORMATION
  Report Type: Spontaneous
  Country: US (occurrence: US)
  Receive Date: 20210118
  Receipt Date: 20210323
  Transmission Date: 20210419
  Serious: No
  Sender: FDA-Public Use
  Company Number: US-DRREDDYS-USA/USA/21/0131052

PATIENT
  Age: 96 Year
  Sex: Female

DRUGS (6)
  1. PREGABALIN. [Suspect]
     Active Substance: PREGABALIN
     Indication: BACK PAIN
  2. PREGABALIN. [Suspect]
     Active Substance: PREGABALIN
     Indication: NEURALGIA
  3. OXYCODONE [Suspect]
     Active Substance: OXYCODONE
     Indication: BONE PAIN
     Dosage: 10MG EVERY 6 HOURS AS NEEDED
  4. OXYCODONE [Suspect]
     Active Substance: OXYCODONE
     Indication: BACK PAIN
  5. KETOPROFEN. [Suspect]
     Active Substance: KETOPROFEN
     Indication: ARTHRALGIA
  6. KETOPROFEN. [Suspect]
     Active Substance: KETOPROFEN
     Indication: BACK PAIN

REACTIONS (4)
  - Constipation [Unknown]
  - Toxicity to various agents [Unknown]
  - Nausea [Recovered/Resolved]
  - Vomiting [Recovered/Resolved]
